FAERS Safety Report 8266504-9 (Version None)
Quarter: 2012Q2

REPORT INFORMATION
  Report Type: 
  Country: None (occurrence: None)
  Receive Date: 20120406
  Receipt Date: 20120402
  Transmission Date: 20120825
  Serious: Yes (Life-Threatening, Hospitalization, Other)
  Sender: FDA-Public Use
  Company Number: US-ASTRAZENECA-2012SE16030

PATIENT
  Age: 39 Year
  Sex: Female

DRUGS (2)
  1. SYMBICORT [Suspect]
     Route: 055
  2. ADVAIR DISKUS 100/50 [Suspect]
     Route: 065

REACTIONS (4)
  - INTENTIONAL DRUG MISUSE [None]
  - ADVERSE EVENT [None]
  - DRUG DOSE OMISSION [None]
  - PNEUMONIA [None]
